FAERS Safety Report 8964064 (Version 2)
Quarter: 2013Q1

REPORT INFORMATION
  Report Type: Spontaneous
  Country: NL (occurrence: NL)
  Receive Date: 20121213
  Receipt Date: 20130102
  Transmission Date: 20140127
  Serious: Yes (Disabling)
  Sender: FDA-Public Use
  Company Number: NL-B.I. PHARMACEUTICALS,INC./RIDGEFIELD-2012-NL-00531NL

PATIENT
  Age: 78 Year
  Sex: Female
  Weight: 88 kg

DRUGS (2)
  1. PRADAXA [Suspect]
     Indication: ATRIAL FIBRILLATION
     Dosage: 150 MG
     Dates: start: 2011
  2. PRADAXA [Suspect]
     Dates: start: 201211

REACTIONS (1)
  - Cerebrovascular accident [Recovered/Resolved with Sequelae]
